FAERS Safety Report 5707314-3 (Version None)
Quarter: 2008Q2

REPORT INFORMATION
  Report Type: 
  Country: None (occurrence: None)
  Receive Date: 20080416
  Receipt Date: 20080311
  Transmission Date: 20081010
  Serious: Yes (Death, Other)
  Sender: FDA-Public Use
  Company Number: BE-PURDUE-GBR_2008_0003906

PATIENT
  Age: 49 Year
  Sex: Male

DRUGS (6)
  1. OXYCONTIN [Suspect]
     Indication: DRUG USE FOR UNKNOWN INDICATION
     Route: 065
  2. INSULIN [Concomitant]
     Indication: DRUG USE FOR UNKNOWN INDICATION
     Route: 065
  3. SELOZOK [Concomitant]
     Indication: DRUG USE FOR UNKNOWN INDICATION
     Dosage: 100 MG, UNK
     Route: 065
  4. LYRICA [Concomitant]
     Indication: DRUG USE FOR UNKNOWN INDICATION
     Dosage: 600 MG, UNK
     Route: 065
  5. BROMAZEPAM [Concomitant]
     Indication: DRUG USE FOR UNKNOWN INDICATION
     Dosage: 12 MG, UNK
     Route: 065
  6. BECLOFORTE ^GLAXO^ [Concomitant]
     Indication: DRUG USE FOR UNKNOWN INDICATION
     Dosage: 1 DF, BID
     Route: 065

REACTIONS (3)
  - CHOLESTASIS [None]
  - DISEASE PROGRESSION [None]
  - SPHINCTER OF ODDI DYSFUNCTION [None]
